FAERS Safety Report 19841782 (Version 1)
Quarter: 2021Q3

REPORT INFORMATION
  Report Type: Report from Study
  Country: None (occurrence: SE)
  Receive Date: 20210915
  Receipt Date: 20210915
  Transmission Date: 20211014
  Serious: Yes (Hospitalization)
  Sender: FDA-Public Use
  Company Number: SE-ABBVIE-21K-150-4077178-00

PATIENT
  Sex: Female

DRUGS (3)
  1. DUODOPA [Suspect]
     Active Substance: CARBIDOPA\LEVODOPA
     Indication: PARKINSON^S DISEASE
     Dosage: THERAPY DURATION: REMAINS AT 24H.
     Route: 050
     Dates: start: 20171120
  2. DUODOPA [Suspect]
     Active Substance: CARBIDOPA\LEVODOPA
     Dosage: CURRENT DOSAGE: MORNING DOSE: 3.5 ML, EXTRA DOSE: 0.8 ML
     Route: 050
     Dates: start: 20210910, end: 20210910
  3. DUODOPA [Suspect]
     Active Substance: CARBIDOPA\LEVODOPA
     Dosage: CONTINUOUS DOSE DECREASED FROM 3.5 ML/H TO 2.5 ML/H
     Route: 050
     Dates: start: 20210910

REACTIONS (2)
  - General physical health deterioration [Unknown]
  - Hallucination [Unknown]
